FAERS Safety Report 19090653 (Version 2)
Quarter: 2021Q2

REPORT INFORMATION
  Report Type: Spontaneous
  Country: US (occurrence: US)
  Receive Date: 20210405
  Receipt Date: 20210531
  Transmission Date: 20210717
  Serious: No
  Sender: FDA-Public Use
  Company Number: US-BIOGEN-2021BI00992574

PATIENT
  Sex: Female

DRUGS (3)
  1. TYSABRI [Suspect]
     Active Substance: NATALIZUMAB
     Indication: MULTIPLE SCLEROSIS
     Route: 065
     Dates: start: 20140630, end: 20170217
  2. COPAXONE [Concomitant]
     Active Substance: GLATIRAMER ACETATE
     Indication: MULTIPLE SCLEROSIS
     Route: 065
  3. AMPYRA [Suspect]
     Active Substance: DALFAMPRIDINE
     Indication: MULTIPLE SCLEROSIS
     Route: 065

REACTIONS (6)
  - Hypoacusis [Unknown]
  - Multiple sclerosis [Unknown]
  - Lower limb fracture [Unknown]
  - Visual impairment [Unknown]
  - Cognitive disorder [Unknown]
  - Fall [Recovered/Resolved]
